FAERS Safety Report 8928704 (Version 1)
Quarter: 2012Q4

REPORT INFORMATION
  Report Type: Spontaneous
  Country: US (occurrence: None)
  Receive Date: 20121126
  Receipt Date: 20121126
  Transmission Date: 20130627
  Serious: Yes (Disabling)
  Sender: FDA-Public Use
  Company Number: None

PATIENT
  Age: 54 Year
  Sex: Female
  Weight: 68.04 kg

DRUGS (2)
  1. Z-PACK AZITHROMYCIN 250 MG TEVA [Suspect]
     Indication: UPPER RESPIRATORY INFECTION
     Dosage: 2 tablets,  1 table next 4 days   24 hours   po
     Route: 048
     Dates: start: 20121116, end: 20121117
  2. AFRIN NO DRIP ORIGINAL PUMP MAXIMUM STRENGTH AFRIN [Suspect]
     Indication: SINUS CONGESTION
     Dosage: 2-3  sprays  per  nostril   10-12 hours   Nasal
     Route: 045
     Dates: start: 20121115, end: 20121116

REACTIONS (2)
  - Anosmia [None]
  - Ageusia [None]
